FAERS Safety Report 4818347-3 (Version None)
Quarter: 2005Q4

REPORT INFORMATION
  Report Type: 
  Country: None (occurrence: None)
  Receive Date: 20051102
  Receipt Date: 20050919
  Transmission Date: 20060501
  Serious: Yes (Other)
  Sender: FDA-Public Use
  Company Number: 2005AC01478

PATIENT
  Age: 62 Year
  Sex: Female

DRUGS (2)
  1. XYLOCAINE [Suspect]
     Indication: LOCAL ANAESTHESIA
     Dosage: 4 ML GIVEN (INCLUDING EPINEPHRINE 1:100 000 U) VIA A TRANSCONJUNCTIVAL APPROACH.
     Route: 053
  2. EPINEPHRINE [Suspect]
     Indication: LOCAL ANAESTHESIA
     Dosage: 1:100 000 U (LIDOCAINE:EPINEPHRINE RATIO)
     Route: 053

REACTIONS (5)
  - CONJUNCTIVAL OEDEMA [None]
  - EXOPHTHALMOS [None]
  - EYELID PTOSIS [None]
  - OCULAR RETROBULBAR HAEMORRHAGE [None]
  - VISUAL ACUITY REDUCED [None]
